FAERS Safety Report 6286493-6 (Version None)
Quarter: 2009Q3

REPORT INFORMATION
  Report Type: 
  Country: None (occurrence: None)
  Receive Date: 20090727
  Receipt Date: 20090727
  Transmission Date: 20100115
  Serious: Yes (Disabling)
  Sender: FDA-Public Use
  Company Number: None

PATIENT
  Age: 64 Year
  Sex: Male
  Weight: 68.0396 kg

DRUGS (1)
  1. ZICAM SWABS [Suspect]
     Indication: NASOPHARYNGITIS
     Dosage: 1 SWAB EVERY 3 TO 4 HRS IN THE NOSE 06/04/08 - 11/08 AND PREVIOUS TO THAT
     Route: 045
     Dates: start: 20080604, end: 20081101

REACTIONS (2)
  - AGEUSIA [None]
  - ANOSMIA [None]
